FAERS Safety Report 12888461 (Version 1)
Quarter: 2016Q4

REPORT INFORMATION
  Report Type: Report from Study
  Country: US (occurrence: US)
  Receive Date: 20161027
  Receipt Date: 20161027
  Transmission Date: 20170207
  Serious: Yes (Other)
  Sender: FDA-Public Use
  Company Number: US-ROCHE-1845142

PATIENT

DRUGS (2)
  1. OSELTAMIVIR [Suspect]
     Active Substance: OSELTAMIVIR
     Indication: INFLUENZA
     Route: 065
  2. IVIG [Suspect]
     Active Substance: HUMAN IMMUNOGLOBULIN G
     Indication: INFLUENZA
     Dosage: DOSE OF 0.25 G/KG WAS BASED ON A VOLUME OF DISTRIBUTION OF 0.05 L/KG
     Route: 042

REACTIONS (2)
  - Persistent depressive disorder [Unknown]
  - Hyperkalaemia [Unknown]
